FAERS Safety Report 4551980-5 (Version None)
Quarter: 2004Q4

REPORT INFORMATION
  Report Type: 
  Country: None (occurrence: None)
  Receive Date: 20041217
  Receipt Date: 20040816
  Transmission Date: 20050328
  Serious: No
  Sender: FDA-Public Use
  Company Number: 2004-BP-06896BP

PATIENT
  Age: 71 Year
  Sex: Female
  Weight: 68.5 kg

DRUGS (13)
  1. SPIRIVA [Suspect]
     Indication: CHRONIC OBSTRUCTIVE AIRWAYS DISEASE
     Dosage: 18 MCG (18 MCG, 1 INHALATION Q DAY), IH
     Route: 055
     Dates: start: 20040814
  2. SPIRIVA [Suspect]
     Indication: EMPHYSEMA
     Dosage: 18 MCG (18 MCG, 1 INHALATION Q DAY), IH
     Route: 055
  3. VITAMIN C (ASCORIC ACID) [Concomitant]
  4. PRILOSEC [Concomitant]
  5. HYDROCHLOROTHIAZIDE [Concomitant]
  6. IBUPROFIN (IBUPROFEN) [Concomitant]
  7. GLUCOSEMINE CHONDROITIN (GLUCOSAMINE W/CHONDROITIN) [Concomitant]
  8. MSM (METHYLSULFONYLMETHANE) [Concomitant]
  9. EVISTA [Concomitant]
  10. VITAMIN E [Concomitant]
  11. VITAMIN 12 (CYANOCOALAMIN) [Concomitant]
  12. FOLATE (FOLATE SODIUM) [Concomitant]
  13. POTASSIUM GLUCONATE (POTASSIUM GLUCONATE) [Concomitant]

REACTIONS (6)
  - CHOKING [None]
  - COUGH [None]
  - HOARSENESS [None]
  - PRODUCTIVE COUGH [None]
  - THROAT TIGHTNESS [None]
  - WHEEZING [None]
